FAERS Safety Report 6731864-4 (Version None)
Quarter: 2010Q2

REPORT INFORMATION
  Report Type: 
  Country: None (occurrence: None)
  Receive Date: 20100519
  Receipt Date: 20080401
  Transmission Date: 20101027
  Serious: Yes (Hospitalization)
  Sender: FDA-Public Use
  Company Number: DE-CELGENEUS-062-C5013-07121240

PATIENT
  Sex: Female
  Weight: 56 kg

DRUGS (6)
  1. CC-5013\PLACEBO [Suspect]
     Indication: MULTIPLE MYELOMA
     Route: 048
     Dates: start: 20070609, end: 20071212
  2. CC-5013\PLACEBO [Suspect]
     Route: 048
     Dates: start: 20071222
  3. MELPHALAN HYDROCHLORIDE [Suspect]
     Indication: MULTIPLE MYELOMA
     Route: 048
     Dates: start: 20070609
  4. PREDNISONE [Suspect]
     Indication: MULTIPLE MYELOMA
     Route: 048
     Dates: start: 20070609
  5. MARCUMAR [Concomitant]
     Indication: ANTICOAGULANT THERAPY
     Route: 048
  6. BIOSORB [Concomitant]
     Indication: DRUG USE FOR UNKNOWN INDICATION
     Route: 048

REACTIONS (2)
  - FEBRILE NEUTROPENIA [None]
  - GASTROENTERITIS NOROVIRUS [None]
